FAERS Safety Report 6288472-1 (Version None)
Quarter: 2009Q3

REPORT INFORMATION
  Report Type: 
  Country: None (occurrence: None)
  Receive Date: 20090729
  Receipt Date: 20090722
  Transmission Date: 20100115
  Serious: Yes (Other)
  Sender: FDA-Public Use
  Company Number: D0062439A

PATIENT
  Sex: Female

DRUGS (2)
  1. VIANI [Suspect]
     Indication: ASTHMA
     Route: 055
  2. NASONEX [Suspect]
     Route: 045

REACTIONS (2)
  - DRUG INTERACTION [None]
  - NASAL SEPTUM PERFORATION [None]
